FAERS Safety Report 10897079 (Version 1)
Quarter: 2015Q1

REPORT INFORMATION
  Report Type: Spontaneous
  Country: GB (occurrence: None)
  Receive Date: 20150302
  Receipt Date: 20150302
  Transmission Date: 20150721
  Serious: Yes (Other)
  Sender: FDA-Public Use
  Company Number: None

PATIENT
  Age: 44 Year
  Sex: Female
  Weight: 65.77 kg

DRUGS (4)
  1. FISH OIL [Concomitant]
     Active Substance: FISH OIL
  2. MEMORABILIA [Concomitant]
  3. LYMECYCLINE [Concomitant]
     Active Substance: LYMECYCLINE
  4. MIRVASO [Suspect]
     Active Substance: BRIMONIDINE TARTRATE
     Indication: ROSACEA

REACTIONS (4)
  - Dry skin [None]
  - Erythema [None]
  - Feeling hot [None]
  - Skin ulcer [None]

NARRATIVE: CASE EVENT DATE: 20141119
